FAERS Safety Report 8060097-7 (Version None)
Quarter: 2012Q1

REPORT INFORMATION
  Report Type: 
  Country: None (occurrence: None)
  Receive Date: 20120120
  Receipt Date: 20120109
  Transmission Date: 20120608
  Serious: Yes (Hospitalization)
  Sender: FDA-Public Use
  Company Number: GB-MEDIMMUNE-MEDI-0014494

PATIENT
  Sex: Female

DRUGS (1)
  1. SYNAGIS [Suspect]
     Dates: start: 20111010, end: 20111206

REACTIONS (2)
  - MECHANICAL VENTILATION [None]
  - RESPIRATORY SYNCYTIAL VIRUS INFECTION [None]
